FAERS Safety Report 21693145 (Version 3)
Quarter: 2022Q4

REPORT INFORMATION
  Report Type: Spontaneous
  Country: CZ (occurrence: CZ)
  Receive Date: 20221207
  Receipt Date: 20221230
  Transmission Date: 20230113
  Serious: Yes (Death, Other)
  Sender: FDA-Public Use
  Company Number: CZ-KOREA IPSEN Pharma-2022-32888

PATIENT
  Age: 50 Year
  Sex: Male

DRUGS (21)
  1. LANREOTIDE ACETATE [Suspect]
     Active Substance: LANREOTIDE ACETATE
     Indication: Vipoma
     Dosage: 120 MG
     Route: 058
     Dates: start: 202105, end: 2021
  2. LANREOTIDE ACETATE [Suspect]
     Active Substance: LANREOTIDE ACETATE
     Dosage: 120 MG
     Route: 058
     Dates: start: 202110, end: 202111
  3. LANREOTIDE ACETATE [Suspect]
     Active Substance: LANREOTIDE ACETATE
     Dosage: 120 MG
     Route: 058
     Dates: start: 202111, end: 202201
  4. SOMATOSTATIN [Suspect]
     Active Substance: SOMATOSTATIN
     Indication: Hyperchlorhydria
     Route: 042
     Dates: start: 202110, end: 202110
  5. PANTOPRAZOLE [Concomitant]
     Active Substance: PANTOPRAZOLE
     Indication: Product used for unknown indication
  6. POTASSIUM CHLORIDE [Concomitant]
     Active Substance: POTASSIUM CHLORIDE
     Route: 048
  7. AFINITOR [Concomitant]
     Active Substance: EVEROLIMUS
     Indication: Vipoma
     Dates: start: 202112
  8. PANTOPRAZOLE SODIUM [Concomitant]
     Active Substance: PANTOPRAZOLE SODIUM
     Indication: Diarrhoea
     Dosage: UNKNOWN
     Dates: start: 202105
  9. POTASSIUM [Concomitant]
     Active Substance: POTASSIUM
     Indication: Hypokalaemia
     Dosage: UNKNOWN
     Dates: start: 202111
  10. IMODIUM [Concomitant]
     Active Substance: LOPERAMIDE HYDROCHLORIDE
     Indication: Diarrhoea
     Dosage: UNKNOWN
     Dates: start: 202111
  11. ATROPINE SULFATE\DIPHENOXYLATE HYDROCHLORIDE [Concomitant]
     Active Substance: ATROPINE SULFATE\DIPHENOXYLATE HYDROCHLORIDE
     Indication: Diarrhoea
     Dates: start: 202111
  12. ONDANSETRON [Concomitant]
     Active Substance: ONDANSETRON
     Indication: Product used for unknown indication
     Dates: start: 202112
  13. SPIRONOLACTONE [Concomitant]
     Active Substance: SPIRONOLACTONE
     Indication: Product used for unknown indication
     Dosage: TWICE DAILY
     Dates: start: 202111
  14. POTASSIUM [Concomitant]
     Active Substance: POTASSIUM
     Indication: Metabolic disorder
     Dosage: 2 AMPOULES
     Dates: start: 202112
  15. SMECTA [Concomitant]
     Active Substance: MONTMORILLONITE
     Indication: Diarrhoea
     Dosage: UNKNOWN
     Dates: start: 202111
  16. SOLU-MEDROL [Concomitant]
     Active Substance: METHYLPREDNISOLONE SODIUM SUCCINATE
     Indication: Product used for unknown indication
     Dates: start: 202112
  17. Kalnorminem [Concomitant]
     Indication: Hypokalaemia
     Dates: start: 202105
  18. HYLAC [Concomitant]
     Indication: Diarrhoea
     Dosage: UNKNOWN
     Dates: start: 202111
  19. XERMELO [Concomitant]
     Active Substance: TELOTRISTAT ETHYL
     Indication: Diarrhoea
     Dosage: 3 TIMES DAILY
     Dates: start: 202109, end: 202111
  20. SODIUM BICARBONATE [Concomitant]
     Active Substance: SODIUM BICARBONATE
     Indication: Metabolic disorder
     Dates: start: 202112
  21. POTASSIUM CHLORIDE [Concomitant]
     Active Substance: POTASSIUM CHLORIDE
     Indication: Metabolic disorder
     Dates: start: 202112

REACTIONS (7)
  - Haemorrhoidal haemorrhage [Fatal]
  - Sepsis [Fatal]
  - Metabolic disorder [Fatal]
  - Disease progression [Recovered/Resolved]
  - Haemorrhoids [Unknown]
  - Drug resistance [Not Recovered/Not Resolved]
  - Off label use [Unknown]

NARRATIVE: CASE EVENT DATE: 20210101
